FAERS Safety Report 8492155 (Version 3)
Quarter: 2012Q4

REPORT INFORMATION
  Report Type: 
  Country: CA (occurrence: CA)
  Receive Date: 20120403
  Receipt Date: 20120917
  Transmission Date: 20130627
  Serious: Yes (Hospitalization, Other)
  Sender: FDA-Public Use
  Company Number: PHHY2012CA027369

PATIENT
  Age: 74 Year
  Sex: Female

DRUGS (3)
  1. ACLASTA [Suspect]
     Indication: OSTEOPOROSIS
     Dosage: UNK
     Route: 042
     Dates: start: 20100511
  2. ACLASTA [Suspect]
     Dosage: UNK
     Route: 042
     Dates: start: 20110512
  3. ACLASTA [Suspect]
     Dosage: UNK
     Route: 042
     Dates: start: 20120529

REACTIONS (4)
  - Cardiac disorder [Unknown]
  - Infusion site infection [Unknown]
  - Infusion site erythema [Unknown]
  - Infusion site swelling [Unknown]
